FAERS Safety Report 8196712-7 (Version None)
Quarter: 2012Q1

REPORT INFORMATION
  Report Type: 
  Country: None (occurrence: None)
  Receive Date: 20120309
  Receipt Date: 20120227
  Transmission Date: 20120608
  Serious: Yes (Other)
  Sender: FDA-Public Use
  Company Number: PHHY2012DE011594

PATIENT
  Sex: Female

DRUGS (12)
  1. TOBI [Suspect]
     Indication: PSEUDOMONAS INFECTION
     Dosage: 4 DF, BID
     Dates: start: 20111219, end: 20120107
  2. KONAKION [Concomitant]
     Dosage: 20 DRP, ONCE WEEKLY
  3. SPIRIVA [Concomitant]
     Dosage: 1 DF, QD
  4. PROMITIN [Concomitant]
     Dosage: 0.5 DF, UNK
  5. FLUTICASONE PROPIONATE [Concomitant]
     Dosage: 2 DF, BID
  6. DEKRISTOL [Concomitant]
     Dosage: 1 DF, UNK
  7. VITAMIN A [Concomitant]
     Dosage: 1 DF ON MONDAY, WEDNESDAY AND FRIDAY
  8. PULMOZYME [Suspect]
     Dosage: 0.5 DF, QD
  9. ALBUTEROL SULFATE [Concomitant]
     Dosage: 2 DF, PRN
  10. FLUTICASONE PROPIONATE/SALMETEROL [Concomitant]
     Dosage: 1 DF, QD
  11. AZITHROMYCIN [Concomitant]
     Dosage: 1 DF ON MONDAY, WEDNESDAY AND FRIDAY
     Route: 048
  12. VITAMIN E [Concomitant]
     Dosage: 1 DF, QD

REACTIONS (3)
  - NASAL OEDEMA [None]
  - COUGH [None]
  - HAEMOPTYSIS [None]
